FAERS Safety Report 11496498 (Version 1)
Quarter: 2015Q3

REPORT INFORMATION
  Report Type: Spontaneous
  Country: AU (occurrence: AU)
  Receive Date: 20150911
  Receipt Date: 20150911
  Transmission Date: 20151125
  Serious: Yes (Other)
  Sender: FDA-Public Use
  Company Number: AU-SA-2015SA136215

PATIENT
  Sex: Female

DRUGS (3)
  1. AVAPRO [Suspect]
     Active Substance: IRBESARTAN
     Route: 065
  2. NORVASC [Concomitant]
     Active Substance: AMLODIPINE BESYLATE
     Dosage: 10 MG
  3. MINAX [Concomitant]
     Active Substance: METAMIZOLE
     Dosage: 100MG

REACTIONS (1)
  - Gastrointestinal surgery [Unknown]
